FAERS Safety Report 6377636-4 (Version None)
Quarter: 2009Q3

REPORT INFORMATION
  Report Type: 
  Country: None (occurrence: None)
  Receive Date: 20090921
  Receipt Date: 20090910
  Transmission Date: 20100115
  Serious: Yes (Life-Threatening, Hospitalization)
  Sender: FDA-Public Use
  Company Number: TCI2009A00607

PATIENT
  Age: 67 Year
  Sex: Female

DRUGS (4)
  1. ACTOS [Suspect]
     Indication: TYPE 2 DIABETES MELLITUS
     Dosage: 30 MG (30 MG, 1 IN 1 D) PER ORAL, PER ORAL
     Route: 048
     Dates: start: 20061227, end: 20070725
  2. ACTOS [Suspect]
     Indication: TYPE 2 DIABETES MELLITUS
     Dosage: 30 MG (30 MG, 1 IN 1 D) PER ORAL, PER ORAL
     Route: 048
     Dates: start: 20070726, end: 20090224
  3. MERCAZOLE (THIAMAZOLE) [Concomitant]
  4. GLYBURIDE [Concomitant]

REACTIONS (13)
  - CARDIAC FAILURE [None]
  - CARDIOMEGALY [None]
  - CARDIOTHORACIC RATIO INCREASED [None]
  - CONGESTIVE CARDIOMYOPATHY [None]
  - COUGH [None]
  - EJECTION FRACTION DECREASED [None]
  - ELECTROCARDIOGRAM ST SEGMENT DEPRESSION [None]
  - ELECTROCARDIOGRAM T WAVE AMPLITUDE DECREASED [None]
  - OEDEMA [None]
  - PLEURAL EFFUSION [None]
  - SUPRAVENTRICULAR EXTRASYSTOLES [None]
  - VENTRICULAR EXTRASYSTOLES [None]
  - VENTRICULAR HYPOKINESIA [None]
